FAERS Safety Report 12187591 (Version 1)
Quarter: 2016Q1

REPORT INFORMATION
  Report Type: Spontaneous
  Country: US (occurrence: None)
  Receive Date: 20160316
  Receipt Date: 20160316
  Transmission Date: 20160526
  Serious: No
  Sender: FDA-Public Use
  Company Number: None

PATIENT
  Age: 54 Year
  Sex: Female

DRUGS (20)
  1. FLAX SEED [Concomitant]
     Active Substance: FLAX SEED
  2. LOSARTAN/HCT [Concomitant]
     Active Substance: HYDROCHLOROTHIAZIDE\LOSARTAN POTASSIUM
  3. PEPPERMINT OIL [Concomitant]
     Active Substance: PEPPERMINT OIL
  4. B COMPLEX/C [Concomitant]
  5. BUPROPION. [Concomitant]
     Active Substance: BUPROPION
  6. MAG OXIDE [Concomitant]
     Active Substance: MAGNESIUM OXIDE
  7. ALIVE 50+ TAB WOMENS [Concomitant]
  8. UBIQUINOL [Concomitant]
     Active Substance: UBIQUINOL
  9. VITAMIN D3 [Concomitant]
     Active Substance: CHOLECALCIFEROL
  10. LIOTHYRONINE [Concomitant]
     Active Substance: LIOTHYRONINE
  11. ASPIRIN. [Concomitant]
     Active Substance: ASPIRIN
  12. ASHWAGANDHA [Concomitant]
     Active Substance: HERBALS
  13. CINNAMON. [Concomitant]
     Active Substance: CINNAMON
  14. FISH OIL [Concomitant]
     Active Substance: FISH OIL
  15. PROBIOTIC [Concomitant]
     Active Substance: PROBIOTICS NOS
  16. HUMATROPE [Suspect]
     Active Substance: SOMATROPIN
     Indication: HYPOPITUITARISM
     Route: 058
     Dates: start: 20160218, end: 20160307
  17. HAIR/SKIN/ TAB NALS [Concomitant]
  18. IODINE [Concomitant]
     Active Substance: IODINE
  19. LEVOTHYROXIN [Concomitant]
     Active Substance: LEVOTHYROXINE
  20. SELEGILINE [Concomitant]
     Active Substance: SELEGILINE

REACTIONS (4)
  - Oedema peripheral [None]
  - Carpal tunnel syndrome [None]
  - Insomnia [None]
  - Incorrect dose administered [None]

NARRATIVE: CASE EVENT DATE: 20160220
